FAERS Safety Report 10651432 (Version 1)
Quarter: 2014Q4

REPORT INFORMATION
  Report Type: Spontaneous
  Country: CH (occurrence: CH)
  Receive Date: 20141215
  Receipt Date: 20141215
  Transmission Date: 20150529
  Serious: Yes (Hospitalization)
  Sender: FDA-Public Use
  Company Number: CH-JNJFOC-20141201996

PATIENT
  Age: 21 Year
  Sex: Female
  Weight: 38 kg

DRUGS (5)
  1. MALTOFER [Concomitant]
     Indication: IRON DEFICIENCY
     Route: 048
     Dates: start: 2012, end: 2014
  2. URBANYL [Concomitant]
     Active Substance: CLOBAZAM
     Indication: EPILEPSY
     Route: 048
     Dates: start: 201212
  3. RISPERDAL [Suspect]
     Active Substance: RISPERIDONE
     Indication: ABNORMAL BEHAVIOUR
     Route: 048
     Dates: start: 20140616, end: 20140805
  4. NITROFURANTOIN. [Suspect]
     Active Substance: NITROFURANTOIN
     Indication: URINARY TRACT INFECTION
     Route: 048
     Dates: start: 20140718, end: 20140805
  5. RISPERDAL [Suspect]
     Active Substance: RISPERIDONE
     Indication: ABNORMAL BEHAVIOUR
     Route: 048
     Dates: start: 20140623

REACTIONS (19)
  - Pallor [Recovered/Resolved]
  - Drug ineffective [Unknown]
  - Decreased activity [Recovered/Resolved]
  - General physical condition abnormal [Unknown]
  - Fatigue [Recovered/Resolved]
  - Gait disturbance [Recovered/Resolved]
  - Autoimmune haemolytic anaemia [Recovered/Resolved]
  - Reticulocytosis [Recovered/Resolved]
  - Coombs direct test positive [Unknown]
  - Nausea [Recovered/Resolved]
  - Abdominal discomfort [Unknown]
  - Haptoglobin decreased [Recovered/Resolved]
  - Blood bilirubin increased [Recovered/Resolved]
  - Crying [Recovered/Resolved]
  - Malaise [Recovered/Resolved]
  - Aspartate aminotransferase increased [Unknown]
  - Blood lactate dehydrogenase increased [Recovered/Resolved]
  - Urinary tract infection [Unknown]
  - Decreased appetite [Recovered/Resolved]

NARRATIVE: CASE EVENT DATE: 201406
